APPROVED DRUG PRODUCT: ORLAAM
Active Ingredient: LEVOMETHADYL ACETATE HYDROCHLORIDE
Strength: 10MG/ML **Federal Register determination that product was not discontinued or withdrawn for safety or effectiveness reasons**
Dosage Form/Route: CONCENTRATE;ORAL
Application: N020315 | Product #001
Applicant: ROXANE LABORATORIES INC
Approved: Jul 9, 1993 | RLD: Yes | RS: No | Type: DISCN